FAERS Safety Report 7718330-4 (Version None)
Quarter: 2011Q3

REPORT INFORMATION
  Report Type: 
  Country: None (occurrence: None)
  Receive Date: 20110830
  Receipt Date: 20110823
  Transmission Date: 20111222
  Serious: Yes (Other)
  Sender: FDA-Public Use
  Company Number: US-PFIZER INC-2011196015

PATIENT
  Age: 60 Year
  Sex: Female

DRUGS (1)
  1. SUTENT [Suspect]
     Indication: METASTATIC RENAL CELL CARCINOMA
     Dosage: 25 MG, UNK
     Route: 048

REACTIONS (8)
  - DYSGEUSIA [None]
  - NAUSEA [None]
  - METASTASIS [None]
  - PARAESTHESIA [None]
  - DIARRHOEA [None]
  - ORAL PAIN [None]
  - PAIN IN EXTREMITY [None]
  - HAIR COLOUR CHANGES [None]
